FAERS Safety Report 8935606 (Version 2)
Quarter: 2013Q2

REPORT INFORMATION
  Report Type: Spontaneous
  Country: US (occurrence: US)
  Receive Date: 20121130
  Receipt Date: 20130402
  Transmission Date: 20140414
  Serious: Yes (Other)
  Sender: FDA-Public Use
  Company Number: US-BAYER-2012-125604

PATIENT
  Age: 43 Year
  Sex: Female
  Weight: 68.93 kg

DRUGS (4)
  1. YASMIN [Suspect]
     Indication: MENSTRUATION IRREGULAR
  2. YASMIN [Suspect]
     Indication: MENORRHAGIA
  3. YAZ [Suspect]
  4. MOTRIN [Concomitant]
     Dosage: 800 MG, UNK

REACTIONS (7)
  - Pulmonary embolism [None]
  - Pulmonary embolism [None]
  - Deep vein thrombosis [None]
  - Off label use [None]
  - Injury [None]
  - Pain [None]
  - Pain [None]
